FAERS Safety Report 8850461 (Version 1)
Quarter: 2012Q4

REPORT INFORMATION
  Report Type: 
  Country: US (occurrence: US)
  Receive Date: 20121019
  Receipt Date: 20121019
  Transmission Date: 20130627
  Serious: Yes (Hospitalization, Other)
  Sender: FDA-Public Use
  Company Number: US-PFIZER INC-2012260173

PATIENT
  Age: 45 Year
  Sex: Female
  Weight: 61 kg

DRUGS (3)
  1. EFFEXOR XR [Suspect]
     Indication: ANXIETY
     Dosage: 37.5 mg, daily
     Dates: start: 2005, end: 2012
  2. EFFEXOR XR [Suspect]
     Dosage: UNK
     Dates: start: 2012
  3. PRISTIQ [Suspect]
     Indication: ANXIETY
     Dosage: 50 mg, daily
     Dates: start: 2012, end: 2012

REACTIONS (4)
  - Suicidal ideation [Unknown]
  - Hostility [Unknown]
  - Agitation [Unknown]
  - Anxiety [Unknown]
